FAERS Safety Report 11530751 (Version 2)
Quarter: 2015Q3

REPORT INFORMATION
  Report Type: Spontaneous
  Country: IT (occurrence: IT)
  Receive Date: 20150921
  Receipt Date: 20150929
  Transmission Date: 20151125
  Serious: Yes (Other)
  Sender: FDA-Public Use
  Company Number: IT-PFIZER INC-2015312896

PATIENT
  Age: 48 Year
  Sex: Female

DRUGS (3)
  1. LIBRIUM [Suspect]
     Active Substance: CHLORDIAZEPOXIDE HYDROCHLORIDE
     Dosage: 2 DF, TOTAL
     Route: 048
     Dates: start: 20150522, end: 20150522
  2. EFFEXOR XR [Suspect]
     Active Substance: VENLAFAXINE HYDROCHLORIDE
     Dosage: 10 DF, TOTAL
     Route: 048
     Dates: start: 20150522, end: 20150522
  3. EN [Suspect]
     Active Substance: DELORAZEPAM
     Dosage: 10 ML, TOTAL
     Route: 048
     Dates: start: 20150522, end: 20150522

REACTIONS (3)
  - Poisoning [Recovering/Resolving]
  - Drug abuse [Recovering/Resolving]
  - Sopor [Recovering/Resolving]

NARRATIVE: CASE EVENT DATE: 20150522
